FAERS Safety Report 17472134 (Version 2)
Quarter: 2020Q2

REPORT INFORMATION
  Report Type: Spontaneous
  Country: US (occurrence: US)
  Receive Date: 20200228
  Receipt Date: 20200417
  Transmission Date: 20200713
  Serious: Yes (Other)
  Sender: FDA-Public Use
  Company Number: US-GLENMARK PHARMACEUTICALS-2020GMK046323

PATIENT

DRUGS (1)
  1. RANITIDINE TABLETS USP, 300 MG [Suspect]
     Active Substance: RANITIDINE HYDROCHLORIDE
     Indication: GASTROOESOPHAGEAL REFLUX DISEASE
     Dosage: 300 MG, BID (MORNING AND NIGHT); START DATE: 3 YEARS AGO AND STOP DATE: 2 WEEKS AGO
     Route: 048
     Dates: end: 202003

REACTIONS (4)
  - Haemorrhage [Not Recovered/Not Resolved]
  - Weight decreased [Recovering/Resolving]
  - Recalled product administered [Unknown]
  - Full blood count decreased [Not Recovered/Not Resolved]

NARRATIVE: CASE EVENT DATE: 2019
